FAERS Safety Report 21077874 (Version 1)
Quarter: 2022Q3

REPORT INFORMATION
  Report Type: Spontaneous
  Country: CN (occurrence: CN)
  Receive Date: 20220713
  Receipt Date: 20220713
  Transmission Date: 20221026
  Serious: Yes (Other)
  Sender: FDA-Public Use
  Company Number: None

PATIENT
  Age: 45 Year
  Sex: Female
  Weight: 53.5 kg

DRUGS (9)
  1. CYCLOPHOSPHAMIDE [Suspect]
     Active Substance: CYCLOPHOSPHAMIDE
     Indication: Breast cancer female
     Dosage: UNK, QD, FIRST CHEMOTHERAPY,ENDOXAN  CTX + NS
     Route: 042
  2. CYCLOPHOSPHAMIDE [Suspect]
     Active Substance: CYCLOPHOSPHAMIDE
     Dosage: 960.000000MG ONCE DAILY, POWDER INJECTION,SECOND CHEMOTHERAPY,(ENDOXAN  CTX) 960 MG + NS 50ML
     Route: 042
     Dates: start: 20220423, end: 20220423
  3. SODIUM CHLORIDE [Suspect]
     Active Substance: SODIUM CHLORIDE
     Indication: Medication dilution
     Dosage: UNK,QD, FIRST CHEMOTHERAPY,ENDOXAN  CTX + NS
     Route: 042
  4. SODIUM CHLORIDE [Suspect]
     Active Substance: SODIUM CHLORIDE
     Dosage: 50 ML,QD,SECOND CHEMOTHERAPY,(ENDOXAN  CTX) 960 MG + NS 50ML
     Route: 042
     Dates: start: 20220423, end: 20220423
  5. SODIUM CHLORIDE [Suspect]
     Active Substance: SODIUM CHLORIDE
     Dosage: UNK,QD, FIRST CHEMOTHERAPY,DOCETAXEL (TAXOTERE) + NS
     Route: 041
  6. SODIUM CHLORIDE [Suspect]
     Active Substance: SODIUM CHLORIDE
     Dosage: 120 MG,SECOND CHEMOTHERAPY,DOCETAXEL (TAXOTERE) 120 MG + NS 250ML
     Route: 041
     Dates: start: 20220423, end: 20220423
  7. TAXOTERE [Suspect]
     Active Substance: DOCETAXEL
     Indication: Breast cancer female
     Dosage: UNK, QD, FIRST CHEMOTHERAPY,DOCETAXEL INJECTION (TAXOTERE) + NS
     Route: 041
  8. TAXOTERE [Suspect]
     Active Substance: DOCETAXEL
     Dosage: 120 MG, QD, SECOND CHEMOTHERAPY,DOCETAXEL (TAXOTERE) 120 MG + NS 250ML
     Route: 041
     Dates: start: 20220423, end: 20220423
  9. XIN RUI BAI [Concomitant]
     Indication: Product used for unknown indication
     Dosage: 6 MG
     Route: 058
     Dates: start: 20220424

REACTIONS (2)
  - White blood cell count decreased [Recovered/Resolved]
  - Agranulocytosis [Recovered/Resolved]

NARRATIVE: CASE EVENT DATE: 20220429
